FAERS Safety Report 4563954-9 (Version None)
Quarter: 2005Q1

REPORT INFORMATION
  Report Type: 
  Country: None (occurrence: None)
  Receive Date: 20050121
  Receipt Date: 20050112
  Transmission Date: 20050727
  Serious: Yes (Hospitalization, Other)
  Sender: FDA-Public Use
  Company Number: 2004069188

PATIENT
  Age: 81 Year
  Sex: Male

DRUGS (4)
  1. ZOLOFT [Suspect]
     Indication: ILL-DEFINED DISORDER
     Dosage: 50 MG (50 MG, 1 IN 1 D), ORAL
     Route: 048
     Dates: start: 20040101, end: 20040801
  2. DONEPEZIL (DONEPEZIL) [Suspect]
     Indication: ILL-DEFINED DISORDER
     Dosage: 10 MG (1 IN 1 D), ORAL
     Route: 048
  3. BROMAZEPAM (BROMAZEPAM) [Concomitant]
  4. ALL OTHER THERAPEUTIC PRODUCTS (ALL OTHER THERAPEUTIC PRODUCTS) [Concomitant]

REACTIONS (7)
  - AGGRESSION [None]
  - AGITATION [None]
  - BODY TEMPERATURE INCREASED [None]
  - CEREBRAL ATROPHY [None]
  - GRAND MAL CONVULSION [None]
  - POSTICTAL STATE [None]
  - VOMITING [None]
